FAERS Safety Report 6969209-7 (Version None)
Quarter: 2010Q3

REPORT INFORMATION
  Report Type: 
  Country: None (occurrence: None)
  Receive Date: 20100907
  Receipt Date: 20100901
  Transmission Date: 20110219
  Serious: Yes (Other)
  Sender: FDA-Public Use
  Company Number: PHHO2010US13389

PATIENT

DRUGS (2)
  1. AFINITOR [Suspect]
     Indication: LYMPHOMA
     Dosage: UNK
     Route: 048
  2. LBH589 LBH+CAP [Suspect]
     Indication: LYMPHOMA
     Dosage: UNK
     Route: 048

REACTIONS (1)
  - FEBRILE NEUTROPENIA [None]
